FAERS Safety Report 23774864 (Version 2)
Quarter: 2024Q2

REPORT INFORMATION
  Report Type: Spontaneous
  Country: US (occurrence: US)
  Receive Date: 20240423
  Receipt Date: 20240505
  Transmission Date: 20240715
  Serious: Yes (Hospitalization, Other)
  Sender: FDA-Public Use
  Company Number: US-009507513-2404USA008319

PATIENT
  Age: 61 Year
  Sex: Male

DRUGS (1)
  1. KEYTRUDA [Suspect]
     Active Substance: PEMBROLIZUMAB
     Indication: Prostate cancer
     Dosage: 200MG/1 DOSE
     Route: 042
     Dates: start: 202212

REACTIONS (4)
  - Myocarditis [Recovering/Resolving]
  - Pneumothorax [Recovering/Resolving]
  - Malignant neoplasm progression [Unknown]
  - Muscle atrophy [Recovering/Resolving]

NARRATIVE: CASE EVENT DATE: 20230101
